FAERS Safety Report 8891358 (Version 1)
Quarter: 2012Q4

REPORT INFORMATION
  Report Type: Spontaneous
  Country: US (occurrence: None)
  Receive Date: 20121105
  Receipt Date: 20121105
  Transmission Date: 20130627
  Serious: Yes (Other)
  Sender: FDA-Public Use
  Company Number: None

PATIENT
  Age: 20 Year
  Sex: Female
  Weight: 72.7 kg

DRUGS (1)
  1. MIRENA IUD [Suspect]
     Indication: CONTRACEPTION
     Dates: start: 201101

REACTIONS (6)
  - Abdominal pain [None]
  - Nervousness [None]
  - Cold sweat [None]
  - Pyrexia [None]
  - Headache [None]
  - Pelvic inflammatory disease [None]
